FAERS Safety Report 4532701-9 (Version None)
Quarter: 2004Q4

REPORT INFORMATION
  Report Type: 
  Country: None (occurrence: None)
  Receive Date: 20041220
  Receipt Date: 20041220
  Transmission Date: 20050328
  Serious: Yes (Life-Threatening, Hospitalization)
  Sender: FDA-Public Use
  Company Number: None

PATIENT
  Age: 64 Year
  Sex: Male
  Weight: 70.3075 kg

DRUGS (1)
  1. ZOLOFT [Suspect]
     Dosage: 50 MG 2 TAB DAILY
     Dates: start: 20040426, end: 20041125

REACTIONS (33)
  - AFFECTIVE DISORDER [None]
  - AGITATION [None]
  - ANGER [None]
  - ARTHRALGIA [None]
  - BACK PAIN [None]
  - CIRCULATORY COLLAPSE [None]
  - CONFUSIONAL STATE [None]
  - DEHYDRATION [None]
  - DELUSION [None]
  - DEPRESSION [None]
  - DISTURBANCE IN ATTENTION [None]
  - DRUG WITHDRAWAL SYNDROME [None]
  - DYSKINESIA [None]
  - DYSURIA [None]
  - EYE MOVEMENT DISORDER [None]
  - FEELING ABNORMAL [None]
  - HEARING IMPAIRED [None]
  - HEART RATE IRREGULAR [None]
  - IRRITABLE BOWEL SYNDROME [None]
  - LIBIDO DECREASED [None]
  - MIDDLE INSOMNIA [None]
  - PAIN [None]
  - PAIN IN EXTREMITY [None]
  - PAINFUL ERECTION [None]
  - PARKINSON'S DISEASE [None]
  - PENILE PAIN [None]
  - PENIS DISORDER [None]
  - POSTURE ABNORMAL [None]
  - PSYCHOMOTOR HYPERACTIVITY [None]
  - SPEECH DISORDER [None]
  - SUICIDE ATTEMPT [None]
  - TREMOR [None]
  - VISUAL DISTURBANCE [None]
